FAERS Safety Report 23202657 (Version 1)
Quarter: 2023Q4

REPORT INFORMATION
  Report Type: Spontaneous
  Country: NP (occurrence: None)
  Receive Date: 20231120
  Receipt Date: 20231120
  Transmission Date: 20240109
  Serious: Yes (Other)
  Sender: FDA-Public Use
  Company Number: NP-MICRO LABS LIMITED-ML2023-06551

PATIENT
  Age: 16 Year
  Sex: Male

DRUGS (1)
  1. LEVETIRACETAM [Suspect]
     Active Substance: LEVETIRACETAM
     Indication: Seizure

REACTIONS (5)
  - Restlessness [Recovering/Resolving]
  - Persecutory delusion [Recovering/Resolving]
  - Hallucination, auditory [Recovering/Resolving]
  - Epileptic psychosis [Recovering/Resolving]
  - Agitation [Recovering/Resolving]
